FAERS Safety Report 9563923 (Version 2)
Quarter: 2013Q4

REPORT INFORMATION
  Report Type: Spontaneous
  Country: US (occurrence: US)
  Receive Date: 20130927
  Receipt Date: 20131012
  Transmission Date: 20140711
  Serious: Yes (Life-Threatening, Other)
  Sender: FDA-Public Use
  Company Number: US-JNJFOC-20130913750

PATIENT
  Sex: Male

DRUGS (2)
  1. TYLENOL UNSPECIFIED [Suspect]
     Route: 048
  2. TYLENOL UNSPECIFIED [Suspect]
     Indication: PRODUCT USED FOR UNKNOWN INDICATION
     Route: 048

REACTIONS (3)
  - Toxicity to various agents [Unknown]
  - Chronic hepatic failure [Not Recovered/Not Resolved]
  - Haemorrhage [Not Recovered/Not Resolved]
